FAERS Safety Report 20047170 (Version 2)
Quarter: 2022Q3

REPORT INFORMATION
  Report Type: Spontaneous
  Country: US (occurrence: US)
  Receive Date: 20211109
  Receipt Date: 20220804
  Transmission Date: 20221026
  Serious: Yes (Other)
  Sender: FDA-Public Use
  Company Number: US-JNJFOC-20211103804

PATIENT
  Age: 61 Year
  Sex: Female

DRUGS (12)
  1. ELMIRON [Suspect]
     Active Substance: PENTOSAN POLYSULFATE SODIUM
     Indication: Cystitis interstitial
     Route: 048
     Dates: start: 1998, end: 2009
  2. ELMIRON [Suspect]
     Active Substance: PENTOSAN POLYSULFATE SODIUM
     Route: 048
     Dates: start: 20091124, end: 20100514
  3. ELMIRON [Suspect]
     Active Substance: PENTOSAN POLYSULFATE SODIUM
     Route: 048
     Dates: start: 20100904, end: 20110520
  4. ELMIRON [Suspect]
     Active Substance: PENTOSAN POLYSULFATE SODIUM
     Route: 048
     Dates: start: 20110606, end: 20190911
  5. LEVOTHYROXINE [Concomitant]
     Active Substance: LEVOTHYROXINE
     Indication: Hypothyroidism
     Dates: start: 20100904, end: 20110510
  6. LEVOTHYROXINE [Concomitant]
     Active Substance: LEVOTHYROXINE
     Dates: start: 20110606
  7. PREMARIN [Concomitant]
     Active Substance: ESTROGENS, CONJUGATED
     Indication: Blood oestrogen decreased
     Dates: start: 1999, end: 20110510
  8. PREMARIN [Concomitant]
     Active Substance: ESTROGENS, CONJUGATED
     Dates: start: 20110606
  9. AMITRIPTYLINE [Concomitant]
     Active Substance: AMITRIPTYLINE
     Indication: Cystitis interstitial
     Dates: start: 20110606, end: 20200224
  10. OXYCODONE [Concomitant]
     Active Substance: OXYCODONE
     Indication: Back pain
     Dates: start: 20110606, end: 20141015
  11. OXYCODONE [Concomitant]
     Active Substance: OXYCODONE
     Indication: Pain in extremity
  12. NAPROXEN [Concomitant]
     Active Substance: NAPROXEN
     Indication: Cystitis interstitial
     Dates: start: 20110606, end: 20200406

REACTIONS (4)
  - Maculopathy [Unknown]
  - Age-related macular degeneration [Not Recovered/Not Resolved]
  - Vitreous detachment [Recovering/Resolving]
  - Retinal pigmentation [Unknown]

NARRATIVE: CASE EVENT DATE: 20140601
